FAERS Safety Report 9063678 (Version 1)
Quarter: 2013Q1

REPORT INFORMATION
  Report Type: Report from Study
  Country: US (occurrence: US)
  Receive Date: 20130131
  Receipt Date: 20130131
  Transmission Date: 20140127
  Serious: No
  Sender: FDA-Public Use
  Company Number: US-ABBOTT-12P-163-1017438-00

PATIENT
  Sex: Male

DRUGS (2)
  1. HUMIRA PEN [Suspect]
     Indication: PSORIASIS
     Dates: end: 20121129
  2. HUMIRA PEN [Suspect]
     Dates: start: 20121129

REACTIONS (1)
  - Drug ineffective [Unknown]
